FAERS Safety Report 15547602 (Version 2)
Quarter: 2019Q3

REPORT INFORMATION
  Report Type: Spontaneous
  Country: NL (occurrence: NL)
  Receive Date: 20181024
  Receipt Date: 20190920
  Transmission Date: 20191004
  Serious: Yes (Other)
  Sender: FDA-Public Use
  Company Number: NL-ENDO PHARMACEUTICALS INC-2018-042519

PATIENT
  Age: 62 Year
  Sex: Female

DRUGS (2)
  1. TESTIM [Suspect]
     Active Substance: TESTOSTERONE
     Indication: GENDER REASSIGNMENT THERAPY
     Dosage: UNK UNKNOWN, UNKNOWN
     Route: 065
  2. DEXAMETHASONE. [Concomitant]
     Active Substance: DEXAMETHASONE
     Indication: PRODUCT USED FOR UNKNOWN INDICATION
     Dosage: UNK UNKNOWN, UNKNOWN
     Route: 065

REACTIONS (3)
  - Erectile dysfunction [Recovered/Resolved]
  - Off label use [Not Recovered/Not Resolved]
  - Prostate cancer [Unknown]

NARRATIVE: CASE EVENT DATE: 2015
